FAERS Safety Report 7119391-6 (Version None)
Quarter: 2010Q4

REPORT INFORMATION
  Report Type: 
  Country: None (occurrence: None)
  Receive Date: 20101123
  Receipt Date: 20101117
  Transmission Date: 20110411
  Serious: Yes (Hospitalization)
  Sender: FDA-Public Use
  Company Number: BE-MERCK-1010BEL00004

PATIENT

DRUGS (9)
  1. JANUVIA [Suspect]
     Indication: HYPERGLYCAEMIA
     Route: 048
     Dates: start: 20100801, end: 20100929
  2. METFORMIN HYDROCHLORIDE [Concomitant]
     Indication: HYPERGLYCAEMIA
     Route: 048
  3. REPAGLINIDE [Concomitant]
     Indication: HYPERGLYCAEMIA
     Route: 048
  4. FUROSEMIDE SODIUM [Concomitant]
     Indication: HYPERTENSION
     Route: 048
  5. EZETIMIBE AND SIMVASTATIN [Concomitant]
     Indication: HYPERCHOLESTEROLAEMIA
     Route: 048
  6. ALLOPURINOL [Concomitant]
     Indication: HYPERURICAEMIA
     Route: 048
  7. ISOSORBIDE DINITRATE [Concomitant]
     Route: 048
  8. LEVOTHYROXINE SODIUM [Concomitant]
     Route: 048
  9. AMLODIPINE BESYLATE AND PERINDOPRIL ARGININE [Concomitant]
     Indication: HYPERTENSION
     Route: 048

REACTIONS (2)
  - PANCREATITIS ACUTE [None]
  - RENAL FAILURE [None]
